FAERS Safety Report 8071413-4 (Version None)
Quarter: 2012Q1

REPORT INFORMATION
  Report Type: 
  Country: None (occurrence: None)
  Receive Date: 20120125
  Receipt Date: 20120116
  Transmission Date: 20120608
  Serious: Yes (Other)
  Sender: FDA-Public Use
  Company Number: US-ELI_LILLY_AND_COMPANY-US201201005465

PATIENT
  Age: 72 Year
  Sex: Male

DRUGS (4)
  1. HUMULIN N [Suspect]
     Dosage: 70 U, EACH EVENING
     Dates: start: 19870101
  2. HUMULIN N [Suspect]
     Indication: DIABETES MELLITUS
     Dosage: 70 U, EACH MORNING
     Dates: start: 19870101
  3. HUMALOG [Suspect]
     Dosage: 12 U, EACH EVENING
     Dates: start: 20120109
  4. HUMALOG [Suspect]
     Indication: DIABETES MELLITUS
     Dosage: 8 U, EACH MORNING
     Dates: start: 20120109

REACTIONS (6)
  - HAND REPAIR OPERATION [None]
  - BLOOD TESTOSTERONE DECREASED [None]
  - SKIN DISORDER [None]
  - MUSCULAR WEAKNESS [None]
  - ROAD TRAFFIC ACCIDENT [None]
  - INCORRECT DOSE ADMINISTERED [None]
